FAERS Safety Report 5237230-5 (Version None)
Quarter: 2007Q1

REPORT INFORMATION
  Report Type: 
  Country: None (occurrence: None)
  Receive Date: 20070213
  Receipt Date: 20070202
  Transmission Date: 20070707
  Serious: Yes (Hospitalization)
  Sender: FDA-Public Use
  Company Number: JP-MERCK-0702USA00807

PATIENT
  Age: 88 Year
  Sex: Female

DRUGS (7)
  1. FOSAMAX [Suspect]
     Indication: OSTEOPOROSIS
     Route: 048
     Dates: start: 20061107, end: 20070130
  2. ZOLPIDEM TARTRATE [Suspect]
     Indication: INSOMNIA
     Route: 048
     Dates: start: 20061107
  3. FLOMOX [Suspect]
     Indication: SYSTEMIC ANTIBACTERIAL THERAPY
     Route: 048
     Dates: start: 20061107
  4. PROPIVERINE HYDROCHLORIDE [Suspect]
     Indication: URINARY INCONTINENCE
     Route: 048
     Dates: start: 20061107
  5. MUCOSTA [Suspect]
     Indication: GASTROINTESTINAL DISORDER
     Route: 048
     Dates: start: 20070117
  6. TAKEPRON [Suspect]
     Indication: GASTROINTESTINAL DISORDER
     Route: 048
     Dates: start: 20070117
  7. LENDORMIN [Suspect]
     Indication: INSOMNIA
     Route: 048
     Dates: start: 20070117

REACTIONS (2)
  - HEPATIC FUNCTION ABNORMAL [None]
  - SPINAL OSTEOARTHRITIS [None]
